FAERS Safety Report 7396003-8 (Version None)
Quarter: 2011Q2

REPORT INFORMATION
  Report Type: 
  Country: None (occurrence: None)
  Receive Date: 20110406
  Receipt Date: 20110324
  Transmission Date: 20111010
  Serious: Yes (Other)
  Sender: FDA-Public Use
  Company Number: GB-RANBAXY-2011R1-43290

PATIENT
  Age: 88 Year
  Sex: Female
  Weight: 57 kg

DRUGS (4)
  1. QUININE BISULPHATE [Concomitant]
     Indication: MUSCLE SPASMS
     Dosage: 300 MG, UNK
     Route: 048
     Dates: start: 20000101
  2. SALBUTAMOL [Concomitant]
     Indication: ASTHMA
     Dosage: UNK, QID
     Route: 055
     Dates: start: 20000101
  3. SERETIDE [Concomitant]
     Indication: ASTHMA
     Dosage: UNK, BID
     Route: 055
     Dates: start: 20000101
  4. AMPICILLIN SODIUM/SULBACTAM SODIUM [Suspect]
     Indication: INFECTION
     Dosage: UNK,UNK
     Route: 048
     Dates: start: 20101223, end: 20110106

REACTIONS (1)
  - JAUNDICE [None]
